FAERS Safety Report 5724047-8 (Version None)
Quarter: 2008Q2

REPORT INFORMATION
  Report Type: 
  Country: None (occurrence: None)
  Receive Date: 20080430
  Receipt Date: 20080423
  Transmission Date: 20081010
  Serious: Yes (Disabling)
  Sender: FDA-Public Use
  Company Number: US-BOEHRINGER INGELHEIM GMBH, GERMANY-2008-BP-03362BP

PATIENT
  Age: 61 Year
  Sex: Female

DRUGS (4)
  1. MICARDIS [Suspect]
     Indication: HYPERTENSION
  2. TOPROL-XL [Concomitant]
  3. ZOCOR [Concomitant]
  4. METFORMIN HCL [Concomitant]

REACTIONS (5)
  - CEREBRAL DISORDER [None]
  - EAR PAIN [None]
  - ERYTHEMA [None]
  - HEADACHE [None]
  - TINNITUS [None]
